FAERS Safety Report 25563349 (Version 1)
Quarter: 2025Q3

REPORT INFORMATION
  Report Type: Report from Study
  Country: US (occurrence: US)
  Receive Date: 20250716
  Receipt Date: 20250716
  Transmission Date: 20251021
  Serious: Yes (Death, Other)
  Sender: GILEAD
  Company Number: US-GILEAD-2025-0720659

PATIENT
  Age: 21 Year

DRUGS (23)
  1. AZTREONAM LYSINE [Suspect]
     Active Substance: AZTREONAM LYSINE
     Indication: Bronchiectasis
     Dosage: 75 MG: INHALE 1 VIAL VIA NEBULIZER THREE TIMES DAILY 28 DAYS ON AND 28 DAYS OFF
     Route: 055
     Dates: start: 20161231
  2. NYSTATIN [Concomitant]
     Active Substance: NYSTATIN
  3. FYCOMPA [Concomitant]
     Active Substance: PERAMPANEL
  4. POLYETHYLENE GLYCOL 3350 [Concomitant]
     Active Substance: POLYETHYLENE GLYCOL 3350
  5. SCOPOLAMINE HYDROBROMIDE [Concomitant]
     Active Substance: SCOPOLAMINE HYDROBROMIDE
  6. TOBRAMYCIN [Concomitant]
     Active Substance: TOBRAMYCIN
  7. TRIAMCINOLON COMPO [Concomitant]
  8. ACETAMINOPHEN [Concomitant]
     Active Substance: ACETAMINOPHEN
  9. ALBUTEROL SULFATE [Concomitant]
     Active Substance: ALBUTEROL SULFATE
  10. BACLOFEN [Concomitant]
     Active Substance: BACLOFEN
  11. CARBOXYMETHYLSTARCH SODIUM [Concomitant]
  12. CLOBAZAM [Concomitant]
     Active Substance: CLOBAZAM
  13. CLONAZEPAM [Concomitant]
     Active Substance: CLONAZEPAM
  14. DIAZEPAM [Concomitant]
     Active Substance: DIAZEPAM
  15. PULMOZYME [Concomitant]
     Active Substance: DORNASE ALFA
  16. EPIDIOLEX [Concomitant]
     Active Substance: CANNABIDIOL
  17. ESOMEPRAZOLE [Concomitant]
     Active Substance: ESOMEPRAZOLE
  18. GLYCERIN ADULT [Concomitant]
     Active Substance: GLYCERIN
  19. CARNITINE [Concomitant]
     Active Substance: CARNITINE
  20. IBUPROFEN [Concomitant]
     Active Substance: IBUPROFEN
  21. LAMOTRIGINE [Concomitant]
     Active Substance: LAMOTRIGINE
  22. KEPPRA [Concomitant]
     Active Substance: LEVETIRACETAM
  23. MONTELUKAST [Concomitant]
     Active Substance: MONTELUKAST

REACTIONS (2)
  - Death [Fatal]
  - Product use in unapproved indication [Unknown]
